FAERS Safety Report 10535616 (Version 2)
Quarter: 2014Q4

REPORT INFORMATION
  Report Type: Spontaneous
  Country: US (occurrence: US)
  Receive Date: 20141022
  Receipt Date: 20141022
  Transmission Date: 20150529
  Serious: No
  Sender: FDA-Public Use
  Company Number: US-RECKITT BENCKISER PHARMACEUTICAL, INC-RB-56736-2013

PATIENT

DRUGS (3)
  1. HYDROCODONE [Interacting]
     Active Substance: HYDROCODONE
     Indication: PAIN IN EXTREMITY
     Route: 065
     Dates: start: 20130919
  2. SUBOXONE [Suspect]
     Active Substance: BUPRENORPHINE HYDROCHLORIDE\NALOXONE HYDROCHLORIDE
     Indication: DRUG DEPENDENCE
     Dosage: SUBOXONE FILM; CUTTING FILM.
     Route: 060
     Dates: start: 2012, end: 20130918
  3. HUMIRA [Suspect]
     Active Substance: ADALIMUMAB
     Indication: CROHN^S DISEASE
     Dosage: DOSING DETAILS UNKNOWN
     Route: 048
     Dates: start: 201306

REACTIONS (6)
  - Nausea [Not Recovered/Not Resolved]
  - Underdose [Recovered/Resolved]
  - Pain in extremity [Not Recovered/Not Resolved]
  - Inhibitory drug interaction [Not Recovered/Not Resolved]
  - Wrong technique in drug usage process [Recovered/Resolved]
  - Foot deformity [Recovered/Resolved]

NARRATIVE: CASE EVENT DATE: 2012
